FAERS Safety Report 5443167-9 (Version None)
Quarter: 2007Q3

REPORT INFORMATION
  Report Type: 
  Country: None (occurrence: None)
  Receive Date: 20070730
  Receipt Date: 20070208
  Transmission Date: 20080115
  Serious: Yes (Other)
  Sender: FDA-Public Use
  Company Number: 233923

PATIENT
  Age: 33 Year
  Sex: Male

DRUGS (4)
  1. RITUXAN [Suspect]
     Indication: NON-HODGKIN'S LYMPHOMA
     Dates: start: 20060601, end: 20061201
  2. CHEMOTHERAPY NOS(ANTINEOPLASTIC AGENT NOS) [Suspect]
     Indication: NON-HODGKIN'S LYMPHOMA
     Dates: start: 20060601, end: 20061201
  3. LEXAPRO [Suspect]
     Indication: DEPRESSION
     Dosage: 10MG, QD, ORAL
     Route: 048
     Dates: start: 20061001
  4. LEVAQUIN [Suspect]
     Indication: PROPHYLAXIS
     Dates: start: 20061122, end: 20061201

REACTIONS (1)
  - WHITE BLOOD CELL COUNT DECREASED [None]
